FAERS Safety Report 10025961 (Version 1)
Quarter: 2014Q1

REPORT INFORMATION
  Report Type: Spontaneous
  Country: US (occurrence: None)
  Receive Date: 20140314
  Receipt Date: 20140314
  Transmission Date: 20141002
  Serious: Yes (Hospitalization)
  Sender: FDA-Public Use
  Company Number: 2014-FR-002858

PATIENT
  Age: 23 Year
  Sex: Female

DRUGS (5)
  1. XYREM [Suspect]
     Indication: NARCOLEPSY
     Route: 048
     Dates: start: 20140112, end: 20140121
  2. INNOVAIR (BECLOMETASONE DIPROPIONATE, FORMOTEROL FUMARATE) [Concomitant]
  3. ALBUTEROL SULFATE [Concomitant]
  4. MODIODAL (MODAFINIL) [Concomitant]
  5. LAMICTAL (LAMOTRIGINE) [Concomitant]

REACTIONS (1)
  - Palpitations [None]
